FAERS Safety Report 4434318-3 (Version None)
Quarter: 2004Q3

REPORT INFORMATION
  Report Type: 
  Country: None (occurrence: None)
  Receive Date: 20040726
  Receipt Date: 20040413
  Transmission Date: 20050211
  Serious: No
  Sender: FDA-Public Use
  Company Number: US_0403101269

PATIENT
  Age: 67 Year
  Sex: Female

DRUGS (13)
  1. FORTEO [Suspect]
     Indication: OSTEOARTHRITIS
     Dosage: 20 UG DAY
     Dates: start: 20040101
  2. FORTEO [Suspect]
     Indication: OSTEOPOROSIS
     Dosage: 20 UG DAY
     Dates: start: 20040101
  3. FORTEO [Suspect]
     Indication: RHEUMATOID ARTHRITIS
     Dosage: 20 UG DAY
     Dates: start: 20040101
  4. PREDNISONE [Concomitant]
  5. PLAQUENIL [Concomitant]
  6. ACETYLSALICYLIC ACID SRT [Concomitant]
  7. SULFADINE (SULFADAMIDINE) [Concomitant]
  8. ZORTHRIN [Concomitant]
  9. PROPRANOLOL [Concomitant]
  10. SYNTHROID [Concomitant]
  11. LANOXIN [Concomitant]
  12. CLINDAMYCIN [Concomitant]
  13. OSCAL (CALCIUM CARBONATE) [Concomitant]

REACTIONS (3)
  - HEART RATE IRREGULAR [None]
  - INJECTION SITE HAEMORRHAGE [None]
  - INJECTION SITE INFLAMMATION [None]
